FAERS Safety Report 5940649-8 (Version None)
Quarter: 2008Q4

REPORT INFORMATION
  Report Type: 
  Country: None (occurrence: None)
  Receive Date: 20081103
  Receipt Date: 20081103
  Transmission Date: 20090506
  Serious: No
  Sender: FDA-Public Use
  Company Number: None

PATIENT
  Sex: Female
  Weight: 72.5755 kg

DRUGS (1)
  1. SANCTURA [Suspect]
     Indication: INCONTINENCE
     Dosage: 60 MG 1X DAY
     Dates: start: 20080710, end: 20080720

REACTIONS (4)
  - ABDOMINAL PAIN UPPER [None]
  - INFLUENZA LIKE ILLNESS [None]
  - PARALYSIS [None]
  - VOMITING [None]
